FAERS Safety Report 17026820 (Version 1)
Quarter: 2019Q4

REPORT INFORMATION
  Report Type: Spontaneous
  Country: US (occurrence: US)
  Receive Date: 20191113
  Receipt Date: 20191113
  Transmission Date: 20200122
  Serious: Yes (Hospitalization)
  Sender: FDA-Public Use
  Company Number: US-PFIZER INC-2019486204

PATIENT
  Age: 17 Year
  Sex: Female

DRUGS (7)
  1. ACETYLCYSTEINE. [Suspect]
     Active Substance: ACETYLCYSTEINE
     Dosage: 70 MG/KG, EVERY 4 HRS
  2. ONDANSETRON [Concomitant]
     Active Substance: ONDANSETRON
     Indication: VOMITING
  3. METOCLOPRAMIDE HCL [Suspect]
     Active Substance: METOCLOPRAMIDE HYDROCHLORIDE
     Indication: VOMITING
     Dosage: 100 MG, UNK
     Route: 042
  4. METOCLOPRAMIDE HCL [Suspect]
     Active Substance: METOCLOPRAMIDE HYDROCHLORIDE
     Dosage: 100 MG, UNK (PER DOSE, TOTAL DOSE, 500 MG, OVER 48 HOURS)
     Route: 042
  5. ACETYLCYSTEINE. [Suspect]
     Active Substance: ACETYLCYSTEINE
     Indication: TOXICITY TO VARIOUS AGENTS
     Dosage: 140 MG/KG, UNK (LOADING DOSE)
     Route: 048
  6. ACETYLCYSTEINE. [Suspect]
     Active Substance: ACETYLCYSTEINE
     Dosage: UNK (COMPLETED A TOTAL OF 18 DOSES OF N-ACETYLCYSTEINE BY THE NEXT DAY)
  7. ONDANSETRON [Concomitant]
     Active Substance: ONDANSETRON
     Indication: NAUSEA
     Dosage: 16 MG, UNK ( OVER 48 HOURS)
     Route: 042

REACTIONS (1)
  - Sulphaemoglobinaemia [Recovered/Resolved]
